FAERS Safety Report 5407981-8 (Version None)
Quarter: 2007Q3

REPORT INFORMATION
  Report Type: 
  Country: None (occurrence: None)
  Receive Date: 20070803
  Receipt Date: 20070720
  Transmission Date: 20080115
  Serious: Yes (Hospitalization)
  Sender: FDA-Public Use
  Company Number: URSO-2007-145

PATIENT
  Age: 59 Year
  Sex: Female

DRUGS (5)
  1. URSO 250 [Suspect]
     Indication: CHRONIC HEPATITIS
     Dosage: 300 MG ORAL
     Route: 048
     Dates: start: 20040909
  2. LOSARTAN POTASSIUM AND HYDROCHLOROTHIAZIDE [Suspect]
     Indication: HYPERTENSION
     Dosage: 1 TABLET DAILY ORAL
     Route: 048
     Dates: start: 20070416, end: 20070619
  3. RAMIAN (SIMVASTATIN) [Concomitant]
  4. OLMESARTAN MEDOXOMIL [Concomitant]
  5. AMLODIPINE BESYLATE [Concomitant]

REACTIONS (1)
  - INTERSTITIAL LUNG DISEASE [None]
